FAERS Safety Report 6380213-2 (Version None)
Quarter: 2009Q3

REPORT INFORMATION
  Report Type: 
  Country: None (occurrence: None)
  Receive Date: 20090921
  Receipt Date: 20090917
  Transmission Date: 20100115
  Serious: Yes (Death)
  Sender: FDA-Public Use
  Company Number: TCI2009A03706

PATIENT
  Sex: Male

DRUGS (2)
  1. ACTOS [Suspect]
     Indication: VENOOCCLUSIVE LIVER DISEASE
     Route: 048
     Dates: start: 20090910
  2. MYLOTARG [Suspect]
     Indication: ACUTE MYELOID LEUKAEMIA RECURRENT
     Route: 041
     Dates: start: 20090827

REACTIONS (1)
  - VENOOCCLUSIVE LIVER DISEASE [None]
